FAERS Safety Report 7822748-9 (Version None)
Quarter: 2011Q4

REPORT INFORMATION
  Report Type: 
  Country: None (occurrence: None)
  Receive Date: 20111018
  Receipt Date: 20110920
  Transmission Date: 20120403
  Serious: Yes (Hospitalization)
  Sender: FDA-Public Use
  Company Number: DE-ROCHE-GNE324270

PATIENT
  Sex: Male

DRUGS (7)
  1. ALLOPURINOL [Concomitant]
  2. LUCENTIS [Suspect]
     Indication: DIABETIC RETINAL OEDEMA
     Dosage: UNK UNK, UNKNOWN
     Route: 050
     Dates: start: 20110707, end: 20110801
  3. RAMIPRIL [Concomitant]
     Dosage: 5/25 MG
  4. FURANTHRIL [Concomitant]
  5. ACE-INHIBITOR [Concomitant]
     Indication: PRODUCT USED FOR UNKNOWN INDICATION
  6. CLOPIDOGREL [Concomitant]
  7. ESCOR [Concomitant]

REACTIONS (5)
  - CARDIAC DISORDER [None]
  - OEDEMA [None]
  - URINE OUTPUT DECREASED [None]
  - HEPATIC VEIN DILATATION [None]
  - RENAL FAILURE ACUTE [None]
